FAERS Safety Report 4656683-4 (Version None)
Quarter: 2005Q2

REPORT INFORMATION
  Report Type: 
  Country: None (occurrence: None)
  Receive Date: 20050509
  Receipt Date: 20050331
  Transmission Date: 20051028
  Serious: Yes (Other)
  Sender: FDA-Public Use
  Company Number: PHEH2005US03835

PATIENT
  Age: 51 Year
  Sex: Male

DRUGS (7)
  1. ZOMETA [Suspect]
     Indication: METASTASES TO BONE
     Dosage: 4 MG, QMO
     Dates: start: 20040331, end: 20050112
  2. PREDNISONE TABLETS USP (NGX) [Concomitant]
     Indication: PROSTATE CANCER
     Dosage: 20 MG, UNK
     Dates: start: 20040218, end: 20040801
  3. NEXIUM [Concomitant]
  4. AMBIEN [Concomitant]
  5. LORTAB [Concomitant]
  6. MITOXANTRONE [Concomitant]
     Dosage: 12 MG/M2, UNK
     Dates: start: 20040218, end: 20040916
  7. TAXOTERE [Concomitant]
     Dosage: 75 MG/M2, UNK
     Dates: start: 20041222, end: 20050112

REACTIONS (3)
  - ARTIFICIAL CROWN PROCEDURE [None]
  - ASEPTIC NECROSIS BONE [None]
  - BONE DISORDER [None]
